FAERS Safety Report 7751007-8 (Version None)
Quarter: 2011Q3

REPORT INFORMATION
  Report Type: 
  Country: None (occurrence: None)
  Receive Date: 20110912
  Receipt Date: 20110825
  Transmission Date: 20111222
  Serious: Yes (Other)
  Sender: FDA-Public Use
  Company Number: US-DEXPHARM-20111294

PATIENT
  Sex: Female
  Weight: 76 kg

DRUGS (2)
  1. LEVOTHYROXINE SODIUM [Concomitant]
  2. OMEPRAZOLE [Suspect]
     Indication: GASTROINTESTINAL PAIN
     Dosage: 20 MG ONCE A DAY, ORAL
     Route: 048
     Dates: end: 20110825

REACTIONS (3)
  - HEPATIC ENZYME INCREASED [None]
  - GASTROINTESTINAL HAEMORRHAGE [None]
  - FULL BLOOD COUNT DECREASED [None]
